FAERS Safety Report 26043917 (Version 1)
Quarter: 2025Q4

REPORT INFORMATION
  Report Type: Spontaneous
  Country: US (occurrence: US)
  Receive Date: 20251114
  Receipt Date: 20251114
  Transmission Date: 20260118
  Serious: No
  Sender: ABBVIE
  Company Number: US-ABBVIE-6542620

PATIENT
  Age: 64 Year
  Sex: Female

DRUGS (1)
  1. BOTOX COSMETIC [Suspect]
     Active Substance: ONABOTULINUMTOXINA
     Indication: Product used for unknown indication
     Dosage: TIME INTERVAL: AS NECESSARY
     Route: 065
     Dates: start: 20250508, end: 20250508

REACTIONS (9)
  - Feeling abnormal [Not Recovered/Not Resolved]
  - Cellulitis [Unknown]
  - Skin indentation [Recovered/Resolved]
  - Tenderness [Not Recovered/Not Resolved]
  - Pain [Recovered/Resolved]
  - Abscess [Unknown]
  - Skin discolouration [Recovered/Resolved]
  - Sinusitis [Unknown]
  - Swelling face [Unknown]

NARRATIVE: CASE EVENT DATE: 20250101
